FAERS Safety Report 8523052-6 (Version None)
Quarter: 2012Q3

REPORT INFORMATION
  Report Type: 
  Country: None (occurrence: None)
  Receive Date: 20120720
  Receipt Date: 20100626
  Transmission Date: 20120928
  Serious: Yes (Hospitalization, Other)
  Sender: FDA-Public Use
  Company Number: US-BAYER-201013275NA

PATIENT
  Age: 17 Year
  Sex: Female
  Weight: 111 kg

DRUGS (34)
  1. CLONIDINE [Concomitant]
  2. PROVERA [Concomitant]
     Indication: POLYCYSTIC OVARIES
     Dosage: 10 MG, ONCE
     Route: 048
     Dates: start: 20080501
  3. MAXALT [Concomitant]
     Indication: MIGRAINE
     Dosage: 10 MG, ONCE
     Route: 048
     Dates: start: 20080501
  4. NAPROXEN [Concomitant]
  5. YAZ [Suspect]
     Indication: UTERINE HAEMORRHAGE
     Dosage: AS USED DOSE: UNK
     Route: 048
     Dates: start: 20060101, end: 20090615
  6. SYNTHROID [Concomitant]
     Dosage: 0.1 MG (DAILY DOSE), QD,
     Dates: start: 20080122
  7. YASMIN [Suspect]
     Indication: UTERINE HAEMORRHAGE
     Dosage: FROM 07-JUL-2005 TO 2007, OR FROM 2003 TO 2006, OR FROM 08-NOV-2005 (NO STOP DATE WAS INFORMED) - AS
     Route: 048
  8. NAPROXEN [Concomitant]
     Dates: start: 20080101
  9. GLIPIZIDE [Concomitant]
     Dates: start: 20100101
  10. CARBATROL [Concomitant]
     Indication: EPILEPSY
     Dosage: UNK
  11. AMBIEN [Concomitant]
  12. YAZ [Suspect]
     Indication: ACNE
  13. DEXTROAMPHETAMINE [Concomitant]
  14. TRI-PREVIFEM [Concomitant]
     Dosage: UNK
     Dates: start: 20090801, end: 20090901
  15. YASMIN [Suspect]
     Indication: ACNE
  16. SYNTHROID [Concomitant]
     Dosage: 0.1 MG (DAILY DOSE), QD,
     Dates: start: 20080122
  17. HYDROXYZINE [Concomitant]
     Dates: start: 20030101
  18. MIRTAZAPINE [Concomitant]
  19. TEGRETOL [Concomitant]
     Indication: CONVULSION
     Dates: start: 19891127
  20. ALBUTEROL [Concomitant]
     Indication: ASTHMA
     Dosage: OFF AND ON
     Route: 055
     Dates: start: 20040101
  21. ADDERALL XR 10 [Concomitant]
     Indication: ATTENTION DEFICIT/HYPERACTIVITY DISORDER
     Dates: start: 20070101
  22. ORTHO TRI-CYCLEN [Concomitant]
     Dosage: FROM 27-APR-2009 TO 18-SEP-2009 PATIENT WAS ON THIS MEDICATION, BUT START AND STOP DATES WERE UNK
  23. SEPTRA [Concomitant]
     Indication: CELLULITIS
  24. LORCET-HD [Concomitant]
     Dosage: UNK
     Dates: start: 20090801
  25. LISINOPRIL [Concomitant]
     Dosage: 10 MG, ONCE
     Route: 048
  26. ANTIBIOTICS [Concomitant]
  27. METFORMIN HYDROCHLORIDE [Concomitant]
     Indication: POLYCYSTIC OVARIES
     Dates: start: 20060101
  28. CARBATROL [Concomitant]
     Dosage: 200 MG, BID
     Route: 048
  29. FLAGYL [Concomitant]
     Indication: VAGINAL INFECTION
     Dosage: 500 MG, TID
     Route: 048
     Dates: start: 20080501
  30. ANTIBIOTICS [Concomitant]
  31. SYNTHROID [Concomitant]
     Indication: HYPOTHYROIDISM
     Dates: start: 20060101
  32. PRILOSEC [Concomitant]
     Dosage: FROM 27-APR-2009 TO 18-SEP-2009 PATIENT WAS ON THIS MEDICATION, BUT START AND STOP DATES WERE UNK
  33. NEURONTIN [Concomitant]
     Dosage: 300 MG, BID
     Route: 048
  34. TYLENOL W/ CODEINE NO. 3 [Concomitant]

REACTIONS (19)
  - ARTHRALGIA [None]
  - CYSTITIS [None]
  - GASTRIC DISORDER [None]
  - AMENORRHOEA [None]
  - ABDOMINAL PAIN [None]
  - ADNEXA UTERI PAIN [None]
  - NAUSEA [None]
  - VOMITING [None]
  - VAGINAL HAEMORRHAGE [None]
  - CHILLS [None]
  - HEADACHE [None]
  - POLYCYSTIC OVARIES [None]
  - CHOLECYSTITIS [None]
  - BILIARY DYSKINESIA [None]
  - PYREXIA [None]
  - RECTAL HAEMORRHAGE [None]
  - PELVIC PAIN [None]
  - ABDOMINAL PAIN UPPER [None]
  - GALLBLADDER CHOLESTEROLOSIS [None]
